FAERS Safety Report 10633632 (Version 1)
Quarter: 2014Q4

REPORT INFORMATION
  Report Type: Spontaneous
  Country: US (occurrence: None)
  Receive Date: 20141203
  Receipt Date: 20141203
  Transmission Date: 20150529
  Serious: Yes (Other)
  Sender: FDA-Public Use
  Company Number: 2014SA160620

PATIENT
  Sex: Female

DRUGS (1)
  1. ICY HOT MEDICATED, BACK [Suspect]
     Active Substance: MENTHOL

REACTIONS (4)
  - Application site vesicles [None]
  - Wound secretion [None]
  - Impaired healing [None]
  - Application site burn [None]
